FAERS Safety Report 9818976 (Version 1)
Quarter: 2014Q1

REPORT INFORMATION
  Report Type: Spontaneous
  Country: US (occurrence: None)
  Receive Date: 20140114
  Receipt Date: 20140114
  Transmission Date: 20141002
  Serious: Yes (Other)
  Sender: FDA-Public Use
  Company Number: None

PATIENT
  Age: 67 Year
  Sex: Male
  Weight: 97.52 kg

DRUGS (11)
  1. CIALIS [Suspect]
     Indication: ERECTILE DYSFUNCTION
     Dosage: 1 EVERY OTHER DAY ORAL
     Route: 048
     Dates: start: 20131229, end: 20140105
  2. CIALIS [Suspect]
     Indication: PROSTATITIS
     Dosage: 1 EVERY OTHER DAY ORAL
     Route: 048
     Dates: start: 20131229, end: 20140105
  3. BACTRIM DS [Concomitant]
  4. ZETIA [Concomitant]
  5. BENICAR [Concomitant]
  6. BYSTOLIC [Concomitant]
  7. ASPIRIN [Concomitant]
  8. AVODART [Concomitant]
  9. COLACE [Concomitant]
  10. CETIRIZINE [Concomitant]
  11. NAPROXEN [Concomitant]

REACTIONS (1)
  - Tinnitus [None]
